FAERS Safety Report 6932598-3 (Version None)
Quarter: 2010Q3

REPORT INFORMATION
  Report Type: 
  Country: None (occurrence: None)
  Receive Date: 20100819
  Receipt Date: 20100816
  Transmission Date: 20110219
  Serious: Yes (Hospitalization)
  Sender: FDA-Public Use
  Company Number: HK-BRISTOL-MYERS SQUIBB COMPANY-15241235

PATIENT
  Age: 52 Year
  Sex: Female

DRUGS (7)
  1. ABATACEPT [Suspect]
     Indication: SYSTEMIC LUPUS ERYTHEMATOSUS
     Route: 042
     Dates: start: 20090205
  2. PREDNISOLONE [Suspect]
     Indication: SYSTEMIC LUPUS ERYTHEMATOSUS
     Dates: start: 20090205
  3. MYCOPHENOLATE MOFETIL [Suspect]
     Indication: SYSTEMIC LUPUS ERYTHEMATOSUS
  4. FOLIC ACID [Concomitant]
     Dates: start: 20090205
  5. RABEPRAZOLE SODIUM [Concomitant]
     Dates: start: 20090205
  6. RAMIPRIL [Concomitant]
     Dosage: 1DF=2.5MG/1.5MG
     Dates: start: 20090205
  7. STILNOX [Concomitant]
     Dates: start: 20090205

REACTIONS (1)
  - LEUKOPENIA [None]
